FAERS Safety Report 20548630 (Version 1)
Quarter: 2022Q1

REPORT INFORMATION
  Report Type: Spontaneous
  Country: US (occurrence: US)
  Receive Date: 20220303
  Receipt Date: 20220303
  Transmission Date: 20220424
  Serious: No
  Sender: FDA-Public Use
  Company Number: US-ALLERGAN-2118848US

PATIENT
  Sex: Female

DRUGS (1)
  1. RESTASIS [Suspect]
     Active Substance: CYCLOSPORINE
     Indication: Dry eye
     Dosage: 2 GTT, BID
     Route: 047

REACTIONS (4)
  - Colitis ulcerative [Not Recovered/Not Resolved]
  - Multiple use of single-use product [Unknown]
  - Drug ineffective [Unknown]
  - Product packaging quantity issue [Unknown]
